FAERS Safety Report 6823125-X (Version None)
Quarter: 2010Q3

REPORT INFORMATION
  Report Type: 
  Country: None (occurrence: None)
  Receive Date: 20100708
  Receipt Date: 20100705
  Transmission Date: 20110219
  Serious: Yes (Death)
  Sender: FDA-Public Use
  Company Number: JP-BRISTOL-MYERS SQUIBB COMPANY-15109465

PATIENT
  Age: 60 Year
  Weight: 47 kg

DRUGS (2)
  1. BRIPLATIN [Suspect]
     Indication: CERVIX CARCINOMA RECURRENT
     Dosage: 73MG IV CYCLE 2.THERAPY DATE:25MAY2010. TRIAL DISCONTINUED ON 22-JUN-2010
     Route: 042
     Dates: start: 20100428
  2. S-1 [Suspect]
     Indication: CERVIX CARCINOMA RECURRENT
     Dosage: CYCLE 1, 28APR10-11MAY10. 100MG ORAL TWICE DAILY  CYCLE 2.THERAPY DATES FROM 25MAY2010-07JUN2010
     Route: 048
     Dates: start: 20100428

REACTIONS (1)
  - SUBILEUS [None]
